FAERS Safety Report 26128716 (Version 1)
Quarter: 2025Q4

REPORT INFORMATION
  Report Type: Spontaneous
  Country: US (occurrence: US)
  Receive Date: 20251208
  Receipt Date: 20251208
  Transmission Date: 20260118
  Serious: No
  Sender: BRISTOL-MYERS SQUIBB COMPANY
  Company Number: US-BRISTOL-MYERS SQUIBB COMPANY-2025-164394

PATIENT
  Age: 76 Year
  Sex: Female
  Weight: 74.39 kg

DRUGS (2)
  1. POMALYST [Suspect]
     Active Substance: POMALIDOMIDE
     Indication: Plasma cell myeloma
     Route: 048
  2. NINLARO [Concomitant]
     Active Substance: IXAZOMIB CITRATE
     Indication: Plasma cell myeloma
     Dosage: NINLARO DOSE: 3MG ON DAYS 1,8,15 EVERY 28 DAYS
     Route: 048
     Dates: start: 20251121

REACTIONS (1)
  - Diarrhoea [Recovering/Resolving]
